FAERS Safety Report 8367369-7 (Version None)
Quarter: 2012Q2

REPORT INFORMATION
  Report Type: 
  Country: None (occurrence: None)
  Receive Date: 20120517
  Receipt Date: 20120514
  Transmission Date: 20120825
  Serious: Yes (Other)
  Sender: FDA-Public Use
  Company Number: US-PFIZER INC-2012117229

PATIENT
  Sex: Male
  Weight: 90.703 kg

DRUGS (5)
  1. ROPINIROLE [Interacting]
     Indication: SLEEP DISORDER
     Dosage: 3 MG, 1X/DAY
  2. CLONAZEPAM [Interacting]
     Indication: SLEEP DISORDER
     Dosage: 2 MG, 1X/DAY
  3. CHANTIX [Interacting]
     Dosage: 1 MG, 2X/DAY
     Dates: start: 20120101, end: 20120511
  4. SEROQUEL [Interacting]
     Indication: SLEEP DISORDER
     Dosage: 200 MG, 1X/DAY
  5. CHANTIX [Suspect]
     Indication: SMOKING CESSATION THERAPY
     Dosage: UNK
     Dates: start: 20120401, end: 20120101

REACTIONS (6)
  - FALL [None]
  - FEELING ABNORMAL [None]
  - MENTAL STATUS CHANGES [None]
  - ABNORMAL BEHAVIOUR [None]
  - DRUG INTERACTION [None]
  - INITIAL INSOMNIA [None]
